FAERS Safety Report 21947274 (Version 3)
Quarter: 2023Q2

REPORT INFORMATION
  Report Type: Spontaneous
  Country: US (occurrence: US)
  Receive Date: 20230202
  Receipt Date: 20230420
  Transmission Date: 20230722
  Serious: Yes (Other)
  Sender: FDA-Public Use
  Company Number: US-PARI RESPIRATORY EQUIPMENT, INC.-2023PAR00005

PATIENT
  Sex: Female
  Weight: 53.515 kg

DRUGS (2)
  1. KITABIS PAK [Suspect]
     Active Substance: TOBRAMYCIN
     Indication: Bronchiectasis
     Dosage: 300 MG VIA NEBULIZER, 2X/DAY USE CONTINUOUSLY
     Dates: start: 202203
  2. KITABIS PAK [Suspect]
     Active Substance: TOBRAMYCIN
     Indication: Pulmonary fibrosis

REACTIONS (4)
  - Pneumonia [Unknown]
  - Weight decreased [Unknown]
  - Cough [Not Recovered/Not Resolved]
  - Off label use [Not Recovered/Not Resolved]

NARRATIVE: CASE EVENT DATE: 20220101
